FAERS Safety Report 6114734-4 (Version None)
Quarter: 2009Q1

REPORT INFORMATION
  Report Type: 
  Country: None (occurrence: None)
  Receive Date: 20090313
  Receipt Date: 20090305
  Transmission Date: 20090719
  Serious: Yes (Other)
  Sender: FDA-Public Use
  Company Number: PHHY2008DE31689

PATIENT
  Age: 72 Year
  Sex: Female

DRUGS (2)
  1. RASILEZ [Suspect]
     Indication: HYPERTENSION
     Dosage: 1 DF, QD
     Route: 048
     Dates: start: 20081206, end: 20081207
  2. RASILEZ [Suspect]
     Dosage: 300 MG, UNK
     Dates: start: 20081209

REACTIONS (5)
  - EXTRASYSTOLES [None]
  - FLANK PAIN [None]
  - PALPITATIONS [None]
  - RESTLESSNESS [None]
  - SENSATION OF PRESSURE [None]
